FAERS Safety Report 5126357-4 (Version None)
Quarter: 2006Q4

REPORT INFORMATION
  Report Type: 
  Country: None (occurrence: None)
  Receive Date: 20061010
  Receipt Date: 20060926
  Transmission Date: 20070319
  Serious: Yes (Hospitalization)
  Sender: FDA-Public Use
  Company Number: 2006BI013681

PATIENT
  Age: 50 Year
  Sex: Female
  Weight: 77.1115 kg

DRUGS (7)
  1. AVONEX [Suspect]
     Indication: MULTIPLE SCLEROSIS
     Dosage: 30 UG;QW; IM
     Route: 030
     Dates: start: 20040213
  2. ESTRADIAL [Concomitant]
  3. ZANAFLEX [Concomitant]
  4. LIPITOR [Concomitant]
  5. CALCIUM GLUCONATE [Concomitant]
  6. MULITIVITAMIN [Concomitant]
  7. ASPIRIN [Concomitant]

REACTIONS (11)
  - ABDOMINAL PAIN UPPER [None]
  - EYE PAIN [None]
  - GALLBLADDER OPERATION [None]
  - HEPATIC ENZYME INCREASED [None]
  - INFLUENZA LIKE ILLNESS [None]
  - INJECTION SITE BRUISING [None]
  - INJECTION SITE HAEMORRHAGE [None]
  - JAUNDICE [None]
  - MUSCLE FATIGUE [None]
  - MUSCLE SPASMS [None]
  - PROCEDURAL COMPLICATION [None]
